FAERS Safety Report 10986697 (Version 3)
Quarter: 2015Q3

REPORT INFORMATION
  Report Type: Spontaneous
  Country: JP (occurrence: JP)
  Receive Date: 20150402
  Receipt Date: 20150915
  Transmission Date: 20151125
  Serious: Yes (Hospitalization)
  Sender: FDA-Public Use
  Company Number: 2015-000635

PATIENT
  Age: 68 Year
  Sex: Female

DRUGS (6)
  1. HALOPERIDOL. [Concomitant]
     Active Substance: HALOPERIDOL
  2. PALGIN [Concomitant]
     Active Substance: AMINOPYRINE\ANTIPYRINE\CAFFEINE\PHENACETIN
  3. TRIHEXYPHENIDYL HYDROCHLORIDE. [Concomitant]
     Active Substance: TRIHEXYPHENIDYL HYDROCHLORIDE
  4. ACTONEL [Suspect]
     Active Substance: RISEDRONATE SODIUM
     Indication: OSTEOPOROSIS
     Route: 048
     Dates: end: 20150202
  5. CALCITONIN [Concomitant]
     Active Substance: CALCITONIN
  6. FLUNITRAZEPAM [Concomitant]
     Active Substance: FLUNITRAZEPAM

REACTIONS (1)
  - Drug-induced liver injury [Recovering/Resolving]

NARRATIVE: CASE EVENT DATE: 20150114
